FAERS Safety Report 19292042 (Version 8)
Quarter: 2022Q2

REPORT INFORMATION
  Report Type: Spontaneous
  Country: US (occurrence: US)
  Receive Date: 20210524
  Receipt Date: 20220407
  Transmission Date: 20220721
  Serious: Yes (Hospitalization, Other)
  Sender: FDA-Public Use
  Company Number: US-GLOBAL BLOOD THERAPEUTICS INC-US-GBT-21-01584

PATIENT
  Sex: Female

DRUGS (2)
  1. OXBRYTA [Suspect]
     Active Substance: VOXELOTOR
     Indication: Haemoglobin C disease
     Route: 048
     Dates: start: 20200408, end: 2021
  2. OXBRYTA [Suspect]
     Active Substance: VOXELOTOR
     Route: 048
     Dates: end: 20211228

REACTIONS (17)
  - Loss of control of legs [Unknown]
  - Pulmonary oedema [Unknown]
  - Dyspnoea [Not Recovered/Not Resolved]
  - Pharyngeal operation [Unknown]
  - Gastrointestinal tube insertion [Unknown]
  - Sickle cell anaemia with crisis [Unknown]
  - Localised infection [Unknown]
  - Thrombosis [Unknown]
  - Endotracheal intubation [Unknown]
  - Extubation [Unknown]
  - Vocal cord disorder [Unknown]
  - Dyspnoea [Unknown]
  - Tracheostomy [Unknown]
  - Dialysis [Not Recovered/Not Resolved]
  - Product dose omission issue [Unknown]
  - Therapy interrupted [Unknown]
  - Product dose omission issue [Unknown]

NARRATIVE: CASE EVENT DATE: 20210101
